FAERS Safety Report 8216484-7 (Version None)
Quarter: 2012Q1

REPORT INFORMATION
  Report Type: 
  Country: None (occurrence: None)
  Receive Date: 20120313
  Receipt Date: 20120229
  Transmission Date: 20120608
  Serious: Yes (Hospitalization)
  Sender: FDA-Public Use
  Company Number: TCI2012A00992

PATIENT
  Age: 39 Year
  Sex: Male

DRUGS (1)
  1. PREVPAC [Suspect]
     Indication: PRODUCT USED FOR UNKNOWN INDICATION
     Dosage: 1 CARD (0.5 CARD, 2 IN 1 D), PER ORAL
     Route: 048
     Dates: start: 20120221, end: 20120226

REACTIONS (1)
  - CARDIAC FAILURE [None]
